FAERS Safety Report 24904394 (Version 1)
Quarter: 2025Q1

REPORT INFORMATION
  Report Type: Spontaneous
  Country: CA (occurrence: CA)
  Receive Date: 20250130
  Receipt Date: 20250130
  Transmission Date: 20250408
  Serious: Yes (Death, Hospitalization, Other)
  Sender: CSL BEHRING
  Company Number: CA-BEH-2025193289

PATIENT
  Age: 55 Year
  Sex: Female
  Weight: 82 kg

DRUGS (13)
  1. HUMAN IMMUNOGLOBULIN G [Suspect]
     Active Substance: HUMAN IMMUNOGLOBULIN G
     Indication: Primary immunodeficiency syndrome
     Dosage: 12.5 G, QW, SOLUTION FOR INFUSION
     Route: 058
  2. HUMAN IMMUNOGLOBULIN G [Suspect]
     Active Substance: HUMAN IMMUNOGLOBULIN G
     Dosage: 12.5 G, QW, SOLUTION FOR INFUSION
     Route: 058
  3. HUMAN IMMUNOGLOBULIN G [Suspect]
     Active Substance: HUMAN IMMUNOGLOBULIN G
     Dosage: 12.5 G, QW, SOLUTION FOR INFUSION
     Route: 065
  4. HUMAN IMMUNOGLOBULIN G [Suspect]
     Active Substance: HUMAN IMMUNOGLOBULIN G
     Dosage: 12.5 G, QW
     Route: 058
  5. HUMAN IMMUNOGLOBULIN G [Suspect]
     Active Substance: HUMAN IMMUNOGLOBULIN G
     Dosage: 13 G, QW, SOLUTION FOR INFUSION
     Route: 065
  6. ACLIDINIUM BROMIDE [Concomitant]
     Active Substance: ACLIDINIUM BROMIDE
     Indication: Product used for unknown indication
     Route: 065
  7. BREO ELLIPTA [Concomitant]
     Active Substance: FLUTICASONE FUROATE\VILANTEROL TRIFENATATE
     Indication: Product used for unknown indication
     Route: 065
  8. ERYTHROMYCIN [Concomitant]
     Active Substance: ERYTHROMYCIN
     Indication: Nerve block
  9. GRAVOL [Concomitant]
     Active Substance: DIMENHYDRINATE
     Indication: Product used for unknown indication
     Route: 065
  10. MORPHINE [Concomitant]
     Active Substance: MORPHINE
     Indication: Pain
     Route: 065
  11. PREDNISONE [Concomitant]
     Active Substance: PREDNISONE
     Indication: Nerve block
  12. NALOXONE HYDROCHLORIDE\OXYCODONE HYDROCHLORIDE [Concomitant]
     Active Substance: NALOXONE HYDROCHLORIDE\OXYCODONE HYDROCHLORIDE
     Indication: Pain
     Route: 065
  13. VENTOLIN [Concomitant]
     Active Substance: ALBUTEROL SULFATE
     Indication: Product used for unknown indication

REACTIONS (51)
  - Abdominal infection [Fatal]
  - Alopecia [Fatal]
  - Asthenia [Fatal]
  - Back pain [Fatal]
  - Blood immunoglobulin A decreased [Fatal]
  - Blood immunoglobulin M decreased [Fatal]
  - Blood potassium decreased [Fatal]
  - Brain fog [Fatal]
  - Cardiac failure [Fatal]
  - Chest discomfort [Fatal]
  - Chills [Fatal]
  - Cold sweat [Fatal]
  - Concussion [Fatal]
  - Condition aggravated [Fatal]
  - Confusional state [Fatal]
  - Contusion [Fatal]
  - Crying [Fatal]
  - Diarrhoea [Fatal]
  - Fall [Fatal]
  - Dyskinesia [Fatal]
  - Feeding disorder [Fatal]
  - Gastrointestinal disorder [Fatal]
  - Gastrointestinal viral infection [Fatal]
  - Head injury [Fatal]
  - Headache [Fatal]
  - Hyperhidrosis [Fatal]
  - Hypertension [Fatal]
  - Illness [Fatal]
  - Impaired driving ability [Fatal]
  - Inappropriate schedule of product administration [Fatal]
  - Incoherent [Fatal]
  - Incorrect dose administered [Fatal]
  - Infusion site mass [Fatal]
  - Infusion site swelling [Fatal]
  - Irritable bowel syndrome [Fatal]
  - Lower respiratory tract congestion [Fatal]
  - Memory impairment [Fatal]
  - Movement disorder [Fatal]
  - Muscular weakness [Fatal]
  - Nausea [Fatal]
  - Onychoclasis [Fatal]
  - Product leakage [Fatal]
  - Skin laceration [Fatal]
  - Sleep disorder [Fatal]
  - Spinal fracture [Fatal]
  - Urinary tract infection [Fatal]
  - Vomiting [Fatal]
  - Product quality issue [Fatal]
  - Weight decreased [Fatal]
  - Blood pressure decreased [Fatal]
  - Off label use [Unknown]
